FAERS Safety Report 16887820 (Version 3)
Quarter: 2020Q2

REPORT INFORMATION
  Report Type: Spontaneous
  Country: CA (occurrence: CA)
  Receive Date: 20191005
  Receipt Date: 20200410
  Transmission Date: 20200713
  Serious: Yes (Other)
  Sender: FDA-Public Use
  Company Number: CA-TEVA-2019-CA-1116291

PATIENT
  Age: 9 Month
  Sex: Male

DRUGS (6)
  1. TOPOTECAN HYDROCHLORIDE. [Suspect]
     Active Substance: TOPOTECAN HYDROCHLORIDE
     Indication: NEUROBLASTOMA
     Route: 065
  2. DOXORUBICIN [Suspect]
     Active Substance: DOXORUBICIN
     Indication: NEUROBLASTOMA
     Route: 042
  3. ETOPOSIDE. [Suspect]
     Active Substance: ETOPOSIDE
     Indication: NEUROBLASTOMA
     Route: 065
  4. CYCLOPHOSPHAMIDE. [Suspect]
     Active Substance: CYCLOPHOSPHAMIDE
     Indication: NEUROBLASTOMA
     Route: 065
  5. CISPLATIN. [Suspect]
     Active Substance: CISPLATIN
     Indication: NEUROBLASTOMA
     Route: 065
  6. VINCRISTINE [Suspect]
     Active Substance: VINCRISTINE
     Indication: NEUROBLASTOMA
     Route: 065

REACTIONS (6)
  - Drug ineffective [Unknown]
  - Neoplasm progression [Unknown]
  - Drug ineffective for unapproved indication [Unknown]
  - Drug resistance [Unknown]
  - Therapy non-responder [Unknown]
  - Anaplastic lymphoma kinase gene mutation [Unknown]
